FAERS Safety Report 20766307 (Version 1)
Quarter: 2022Q2

REPORT INFORMATION
  Report Type: Spontaneous
  Country: US (occurrence: US)
  Receive Date: 20220428
  Receipt Date: 20220428
  Transmission Date: 20220721
  Serious: No
  Sender: FDA-Public Use
  Company Number: US-BRISTOL-MYERS SQUIBB COMPANY-2022-028767

PATIENT
  Age: 57 Year
  Sex: Female
  Weight: 108.86 kg

DRUGS (1)
  1. ORENCIA [Suspect]
     Active Substance: ABATACEPT
     Indication: Rheumatoid arthritis
     Dosage: DOSE : 125 MG;     FREQ : ONCE WEEKLY
     Route: 058
     Dates: start: 20220325

REACTIONS (5)
  - Device leakage [Unknown]
  - Incorrect dose administered [Unknown]
  - Product storage error [Unknown]
  - Product packaging issue [Unknown]
  - Device defective [Unknown]

NARRATIVE: CASE EVENT DATE: 20220424
